FAERS Safety Report 9027735 (Version 1)
Quarter: 2013Q1

REPORT INFORMATION
  Report Type: Spontaneous
  Country: US (occurrence: US)
  Receive Date: 20130123
  Receipt Date: 20130123
  Transmission Date: 20140127
  Serious: Yes (Other)
  Sender: FDA-Public Use
  Company Number: US-TEVA-381598USA

PATIENT
  Sex: Male

DRUGS (8)
  1. PROVIGIL [Suspect]
     Indication: SOMNOLENCE
     Dates: start: 20121208, end: 20130114
  2. PROVIGIL [Suspect]
     Indication: ATTENTION DEFICIT/HYPERACTIVITY DISORDER
  3. NAPROXEN SODIUM [Concomitant]
     Indication: PAIN
     Dosage: AS NEEDED
  4. SERTRALINE [Concomitant]
     Indication: ANXIETY
     Dosage: 200 MILLIGRAM DAILY;
  5. SERTRALINE [Concomitant]
     Indication: OBSESSIVE-COMPULSIVE DISORDER
  6. CLONAZEPAM [Concomitant]
     Indication: ANXIETY
     Dosage: 1 MILLIGRAM DAILY;
  7. SYNTHROID [Concomitant]
     Indication: HYPOTHYROIDISM
     Dosage: 75 MICROGRAM DAILY;
  8. LYRICA [Concomitant]
     Indication: FIBROMYALGIA
     Dosage: 75 MILLIGRAM DAILY;

REACTIONS (5)
  - Coeliac disease [Recovered/Resolved]
  - Diarrhoea [Recovered/Resolved]
  - Flatulence [Recovered/Resolved]
  - Abdominal pain upper [Recovered/Resolved]
  - Off label use [Recovered/Resolved]
